FAERS Safety Report 8829560 (Version 1)
Quarter: 2012Q4

REPORT INFORMATION
  Report Type: 
  Country: ES (occurrence: ES)
  Receive Date: 20121008
  Receipt Date: 20121008
  Transmission Date: 20130627
  Serious: Yes (Hospitalization, Other)
  Sender: FDA-Public Use
  Company Number: ES-JNJFOC-20121004486

PATIENT
  Age: 62 Year
  Sex: Female

DRUGS (9)
  1. XARELTO [Suspect]
     Indication: CEREBROVASCULAR ACCIDENT PROPHYLAXIS
     Route: 048
     Dates: start: 201207, end: 20120718
  2. XARELTO [Suspect]
     Indication: ATRIAL FIBRILLATION
     Route: 048
     Dates: start: 201207, end: 20120718
  3. MANIDON [Concomitant]
     Indication: HYPERTENSION
  4. MANIDON [Concomitant]
     Indication: HYPERTENSION
  5. MANIDON [Concomitant]
     Indication: ATRIAL FIBRILLATION
  6. MANIDON [Concomitant]
     Indication: ATRIAL FIBRILLATION
  7. SINTROM [Concomitant]
     Dates: start: 2012
  8. SINTROM [Concomitant]
     Dates: start: 2010, end: 201207
  9. APOCARD [Concomitant]
     Indication: ATRIAL FIBRILLATION

REACTIONS (1)
  - Ischaemic stroke [Recovered/Resolved]
